FAERS Safety Report 8260242-4 (Version None)
Quarter: 2012Q2

REPORT INFORMATION
  Report Type: 
  Country: None (occurrence: None)
  Receive Date: 20120404
  Receipt Date: 20120403
  Transmission Date: 20120825
  Serious: Yes (Death, Hospitalization)
  Sender: FDA-Public Use
  Company Number: JP-B.I. PHARMACEUTICALS,INC./RIDGEFIELD-2012-BP-05901NB

PATIENT
  Age: 86 Year
  Sex: Female
  Weight: 48 kg

DRUGS (8)
  1. ALDACTONE [Concomitant]
     Route: 065
  2. UNKNOWN DRUG [Concomitant]
     Route: 065
     Dates: end: 20120312
  3. CELEBREX [Concomitant]
     Route: 065
     Dates: start: 20120312
  4. PRADAXA [Suspect]
     Indication: ATRIAL FIBRILLATION
     Dosage: 220 MG
     Route: 048
     Dates: start: 20120222, end: 20120323
  5. RECALBON [Concomitant]
     Route: 065
  6. LASIX [Concomitant]
     Route: 065
  7. ANPLAG [Suspect]
     Route: 048
     Dates: start: 20120222, end: 20120321
  8. ARICEPT [Concomitant]
     Route: 065

REACTIONS (3)
  - GASTROINTESTINAL HAEMORRHAGE [None]
  - SHOCK HAEMORRHAGIC [None]
  - ABDOMINAL PAIN UPPER [None]
